FAERS Safety Report 13054485 (Version 1)
Quarter: 2016Q4

REPORT INFORMATION
  Report Type: Spontaneous
  Country: US (occurrence: US)
  Receive Date: 20161222
  Receipt Date: 20161222
  Transmission Date: 20170207
  Serious: Yes (Hospitalization, Other)
  Sender: FDA-Public Use
  Company Number: US-INCYTE CORPORATION-2016IN008136

PATIENT
  Age: 47 Year
  Sex: Male

DRUGS (1)
  1. JAKAFI [Suspect]
     Active Substance: RUXOLITINIB
     Indication: POLYCYTHAEMIA VERA
     Dosage: 5 MG 2 TABS, BID
     Route: 048
     Dates: start: 20161108, end: 20161129

REACTIONS (3)
  - Platelet count increased [Unknown]
  - Therapeutic response unexpected [Unknown]
  - Seizure [Unknown]

NARRATIVE: CASE EVENT DATE: 20161129
